FAERS Safety Report 24811088 (Version 1)
Quarter: 2025Q1

REPORT INFORMATION
  Report Type: Spontaneous
  Country: US (occurrence: US)
  Receive Date: 20250106
  Receipt Date: 20250106
  Transmission Date: 20250409
  Serious: Yes (Other)
  Sender: DR REDDYS
  Company Number: US-DRL-USA-LIT/USA/24/0019317

PATIENT
  Age: 56 Year
  Sex: Male

DRUGS (4)
  1. ATROPINE\DIPHENOXYLATE [Suspect]
     Active Substance: ATROPINE\DIPHENOXYLATE
     Indication: Irritable bowel syndrome
  2. CHOLESTYRAMINE [Suspect]
     Active Substance: CHOLESTYRAMINE
     Indication: Irritable bowel syndrome
  3. RIFAXIMIN [Suspect]
     Active Substance: RIFAXIMIN
     Indication: Irritable bowel syndrome
  4. DICYCLOMINE [Suspect]
     Active Substance: DICYCLOMINE HYDROCHLORIDE
     Indication: Irritable bowel syndrome

REACTIONS (2)
  - Condition aggravated [Unknown]
  - Drug ineffective for unapproved indication [Unknown]
